FAERS Safety Report 4820021-4 (Version None)
Quarter: 2005Q4

REPORT INFORMATION
  Report Type: 
  Country: None (occurrence: None)
  Receive Date: 20051031
  Receipt Date: 20050823
  Transmission Date: 20060501
  Serious: No
  Sender: FDA-Public Use
  Company Number: 2005PV001154

PATIENT
  Age: 57 Year
  Sex: Female
  Weight: 93.441 kg

DRUGS (13)
  1. SYMLIN [Suspect]
     Indication: DIABETES MELLITUS NON-INSULIN-DEPENDENT
     Dosage: 60 MCG;TID;SC
     Route: 058
     Dates: start: 20050723
  2. ACEBUTOLOL [Concomitant]
  3. CLONAZEPAM [Concomitant]
  4. LOPID [Concomitant]
  5. ACTOS [Concomitant]
  6. HYZAAR [Concomitant]
  7. ZOLOFT [Concomitant]
  8. FISH OIL [Concomitant]
  9. ASCORBIC ACID [Concomitant]
  10. VITAMIN E [Concomitant]
  11. MULTIVITAMIN [Concomitant]
  12. LANTUS [Concomitant]
  13. HUMALOG [Concomitant]

REACTIONS (5)
  - BLOOD GLUCOSE DECREASED [None]
  - DRY EYE [None]
  - DRY MOUTH [None]
  - HEADACHE [None]
  - KERATOCONJUNCTIVITIS SICCA [None]
